FAERS Safety Report 12633139 (Version 2)
Quarter: 2016Q3

REPORT INFORMATION
  Report Type: Spontaneous
  Country: US (occurrence: US)
  Receive Date: 20160808
  Receipt Date: 20160808
  Transmission Date: 20161109
  Serious: No
  Sender: FDA-Public Use
  Company Number: US-BEH-2016058556

PATIENT
  Sex: Female
  Weight: 73 kg

DRUGS (21)
  1. HIZENTRA [Suspect]
     Active Substance: HUMAN IMMUNOGLOBULIN G
     Indication: IMMUNODEFICIENCY COMMON VARIABLE
     Route: 058
  2. MULTIVITAMIN [Concomitant]
     Active Substance: VITAMINS
  3. LMX [Concomitant]
     Active Substance: LIDOCAINE
  4. PRAVASTATIN. [Concomitant]
     Active Substance: PRAVASTATIN
  5. ROBITUSSIN (GUAIFENESIN) [Concomitant]
     Active Substance: GUAIFENESIN
  6. IPRATROPIUM [Concomitant]
     Active Substance: IPRATROPIUM
  7. LIDOCAINE/PRILOCAINE [Concomitant]
     Active Substance: LIDOCAINE\PRILOCAINE
  8. EPIPEN [Concomitant]
     Active Substance: EPINEPHRINE
  9. MUCINEX [Concomitant]
     Active Substance: GUAIFENESIN
  10. PREDNISONE. [Concomitant]
     Active Substance: PREDNISONE
  11. ADVAIR HFA [Concomitant]
     Active Substance: FLUTICASONE PROPIONATE\SALMETEROL XINAFOATE
  12. HIZENTRA [Suspect]
     Active Substance: HUMAN IMMUNOGLOBULIN G
     Dates: start: 20110331
  13. FOLIC ACID. [Concomitant]
     Active Substance: FOLIC ACID
  14. METFORMIN [Concomitant]
     Active Substance: METFORMIN HYDROCHLORIDE
  15. LEVOTHYROXINE. [Concomitant]
     Active Substance: LEVOTHYROXINE
  16. DIPHENHYDRAMINE. [Concomitant]
     Active Substance: DIPHENHYDRAMINE
  17. POTASSIUM [Concomitant]
     Active Substance: POTASSIUM
  18. METOPROLOL. [Concomitant]
     Active Substance: METOPROLOL
  19. HIZENTRA [Suspect]
     Active Substance: HUMAN IMMUNOGLOBULIN G
     Route: 058
  20. ALBUTEROL. [Concomitant]
     Active Substance: ALBUTEROL
  21. BUPROPION. [Concomitant]
     Active Substance: BUPROPION

REACTIONS (2)
  - Bronchitis [Unknown]
  - Administration site swelling [Unknown]
